FAERS Safety Report 16234542 (Version 1)
Quarter: 2019Q2

REPORT INFORMATION
  Report Type: Spontaneous
  Country: US (occurrence: US)
  Receive Date: 20190424
  Receipt Date: 20190424
  Transmission Date: 20190711
  Serious: No
  Sender: FDA-Public Use
  Company Number: US-TEVA-2019-US-1036550

PATIENT
  Sex: Male

DRUGS (1)
  1. CARTIA XT [Suspect]
     Active Substance: DILTIAZEM HYDROCHLORIDE
     Route: 065

REACTIONS (3)
  - Product residue present [Unknown]
  - Incorrect dose administered [Unknown]
  - Wrong technique in product usage process [Unknown]
